FAERS Safety Report 9408914 (Version 3)
Quarter: 2013Q3

REPORT INFORMATION
  Report Type: Spontaneous
  Country: US (occurrence: US)
  Receive Date: 20130719
  Receipt Date: 20130909
  Transmission Date: 20140515
  Serious: Yes (Life-Threatening, Hospitalization, Other)
  Sender: FDA-Public Use
  Company Number: US-MERCK-1307USA009819

PATIENT
  Age: 51 Year
  Sex: Male
  Weight: 73.16 kg

DRUGS (6)
  1. JANUMET [Suspect]
     Indication: TYPE 2 DIABETES MELLITUS
     Dosage: 50/1000MG, BID
     Route: 048
  2. FINASTERIDE [Concomitant]
     Dosage: 5 MG, UNK
     Route: 048
  3. LEVOTHYROXINE SODIUM [Concomitant]
     Dosage: 137
     Route: 048
  4. LISINOPRIL [Concomitant]
     Dosage: 2.5
     Route: 048
  5. PRAVASTATIN SODIUM [Concomitant]
     Dosage: 40
     Route: 048
  6. GLIMEPIRIDE [Concomitant]
     Dosage: 2
     Route: 048

REACTIONS (1)
  - Medullary thyroid cancer [Recovered/Resolved]
